FAERS Safety Report 8401905-7 (Version None)
Quarter: 2012Q2

REPORT INFORMATION
  Report Type: 
  Country: None (occurrence: None)
  Receive Date: 20120601
  Receipt Date: 20120521
  Transmission Date: 20120825
  Serious: Yes (Hospitalization)
  Sender: FDA-Public Use
  Company Number: US-GE HEALTHCARE MEDICAL DIAGNOSTICS-OMPQ-PR-1205S-0525

PATIENT
  Age: 47 Year
  Sex: Female

DRUGS (3)
  1. OMNIPAQUE 140 [Suspect]
     Indication: BILIARY DRAINAGE
  2. OMNIPAQUE 140 [Suspect]
     Indication: DIAGNOSTIC PROCEDURE
  3. OMNIPAQUE 140 [Suspect]
     Indication: COLON CANCER
     Route: 042
     Dates: start: 20120315, end: 20120315

REACTIONS (6)
  - DEHYDRATION [None]
  - DYSPNOEA [None]
  - UNRESPONSIVE TO STIMULI [None]
  - BLOOD SODIUM DECREASED [None]
  - ANAPHYLACTOID REACTION [None]
  - TREMOR [None]
